FAERS Safety Report 8904291 (Version 2)
Quarter: 2012Q4

REPORT INFORMATION
  Report Type: Report from Study
  Country: FR (occurrence: FR)
  Receive Date: 20121113
  Receipt Date: 20121228
  Transmission Date: 20130627
  Serious: Yes (Death)
  Sender: FDA-Public Use
  Company Number: PHHY2012FR104174

PATIENT
  Age: 89 Year
  Sex: Female
  Weight: 56 kg

DRUGS (12)
  1. ACLASTA/ZOLEDRONATE [Suspect]
     Indication: OSTEOPOROSIS
     Dosage: 5 mg, UNK
     Route: 042
     Dates: start: 201110
  2. LEXOMIL [Concomitant]
  3. KARDEGIC [Concomitant]
     Dosage: UNK
     Dates: start: 1988
  4. LEVOTHYROX [Concomitant]
     Dosage: UNK
     Dates: start: 1995
  5. SECTRAL [Concomitant]
     Dosage: UNK
     Dates: start: 1998
  6. FENOFIBRATE [Concomitant]
     Dosage: UNK
     Dates: start: 2000
  7. SOLUPRED [Concomitant]
     Dosage: UNK
     Dates: start: 2009
  8. COVERSYL [Concomitant]
     Dosage: UNK
     Dates: start: 2010
  9. MAXILENE [Concomitant]
     Dosage: UNK
     Dates: start: 2011
  10. EXFORGE [Concomitant]
  11. CRESTOR [Concomitant]
  12. CACIT D3 [Concomitant]
     Dosage: UNK

REACTIONS (1)
  - Sudden death [Fatal]
